FAERS Safety Report 13293999 (Version 2)
Quarter: 2017Q2

REPORT INFORMATION
  Report Type: Spontaneous
  Country: AU (occurrence: AU)
  Receive Date: 20170303
  Receipt Date: 20170417
  Transmission Date: 20170830
  Serious: Yes (Hospitalization, Disabling)
  Sender: FDA-Public Use
  Company Number: AU-MUNDIPHARMA DS AND PHARMACOVIGILANCE-GBR-2017-0043790

PATIENT
  Sex: Female

DRUGS (7)
  1. COENZYME Q10 [Concomitant]
     Active Substance: UBIDECARENONE
     Dosage: 150 MG, DAILY
  2. TEMAZE [Concomitant]
     Active Substance: TEMAZEPAM
  3. TARGIN [Suspect]
     Active Substance: NALOXONE HYDROCHLORIDE\OXYCODONE HYDROCHLORIDE
     Indication: ARTHRALGIA
     Dosage: UNK
     Route: 048
     Dates: start: 2014, end: 2014
  4. PANAMAX [Concomitant]
     Active Substance: ACETAMINOPHEN
  5. ATACAND [Concomitant]
     Active Substance: CANDESARTAN CILEXETIL
  6. SOMAC [Concomitant]
     Active Substance: PANTOPRAZOLE SODIUM
     Dosage: 40 MG, DAILY
  7. MACU-VISION [Concomitant]
     Active Substance: ASCORBIC ACID\CUPRIC OXIDE\TOCOPHERSOLAN\ZINC OXIDE

REACTIONS (5)
  - Diarrhoea [Recovered/Resolved]
  - Delirium [Recovered/Resolved]
  - Restlessness [Recovered/Resolved]
  - Vomiting [Recovered/Resolved]
  - Nausea [Recovered/Resolved]

NARRATIVE: CASE EVENT DATE: 2014
